FAERS Safety Report 19627111 (Version 1)
Quarter: 2021Q3

REPORT INFORMATION
  Report Type: Spontaneous
  Country: FR (occurrence: FR)
  Receive Date: 20210729
  Receipt Date: 20210729
  Transmission Date: 20211014
  Serious: Yes (Hospitalization)
  Sender: FDA-Public Use
  Company Number: FR-TEVA-2021-FR-1937116

PATIENT
  Age: 85 Year
  Sex: Male
  Weight: 84 kg

DRUGS (13)
  1. ACENOCOUMAROL [Concomitant]
     Active Substance: ACENOCOUMAROL
     Indication: THROMBOSIS PROPHYLAXIS
     Route: 048
  2. ERIVEDGE 150 MG, GELULE [Concomitant]
     Dosage: 1 DF
     Route: 048
     Dates: start: 20160517, end: 20161124
  3. MIRTAZAPINE. [Concomitant]
     Active Substance: MIRTAZAPINE
     Indication: DEPRESSION
     Route: 048
     Dates: start: 202104
  4. FENTANYL. [Concomitant]
     Active Substance: FENTANYL
     Indication: PAIN
     Route: 062
  5. CHLORHYDRATE D OXYCODONE [Concomitant]
     Indication: CANCER PAIN
     Route: 048
     Dates: start: 202102
  6. ERIVEDGE 150 MG, GELULE [Concomitant]
     Dosage: 1 DF
     Route: 048
     Dates: start: 20170921, end: 20180607
  7. CHLORHYDRATE DE TAMSULOSINE [Concomitant]
     Active Substance: TAMSULOSIN HYDROCHLORIDE
     Indication: BENIGN PROSTATIC HYPERPLASIA
     Route: 048
  8. FUROSEMIDE. [Suspect]
     Active Substance: FUROSEMIDE
     Indication: CARDIAC FAILURE
     Dosage: 40 MG
     Route: 048
  9. ACETATE DE FLECAINIDE [Suspect]
     Active Substance: FLECAINIDE ACETATE
     Indication: ATRIAL FIBRILLATION
     Route: 048
     Dates: end: 202107
  10. SPIRONOLACTONE. [Suspect]
     Active Substance: SPIRONOLACTONE
     Indication: CARDIAC FAILURE
     Route: 048
  11. ERIVEDGE 150 MG, GELULE [Concomitant]
     Indication: BASAL CELL CARCINOMA
     Dosage: 150 MG
     Route: 048
     Dates: start: 20200120, end: 20200305
  12. LIBTAYO [Suspect]
     Active Substance: CEMIPLIMAB-RWLC
     Indication: METASTATIC SQUAMOUS CELL CARCINOMA
     Dosage: 350 MG
     Route: 041
     Dates: start: 20201009, end: 20210525
  13. ERIVEDGE 150 MG, GELULE [Concomitant]
     Dosage: 150 MG
     Route: 048
     Dates: start: 20200925

REACTIONS (1)
  - Interstitial lung disease [Not Recovered/Not Resolved]

NARRATIVE: CASE EVENT DATE: 20210528
